FAERS Safety Report 16963501 (Version 1)
Quarter: 2019Q4

REPORT INFORMATION
  Report Type: Spontaneous
  Country: US (occurrence: US)
  Receive Date: 20191025
  Receipt Date: 20191025
  Transmission Date: 20200122
  Serious: No
  Sender: FDA-Public Use
  Company Number: US-009507513-1910USA012910

PATIENT
  Sex: Female

DRUGS (8)
  1. CARBAMAZEPINE. [Concomitant]
     Active Substance: CARBAMAZEPINE
  2. FOLLISTIM AQ [Suspect]
     Active Substance: FOLLITROPIN
     Indication: INFERTILITY FEMALE
     Dosage: 225 INTERNATIONAL UNIT, QD
     Route: 058
     Dates: start: 20190829
  3. PUREGON PEN [DEVICE] [Suspect]
     Active Substance: DEVICE
  4. MENOPUR [Concomitant]
     Active Substance: FOLLITROPIN\LUTEINIZING HORMONE
     Dosage: MENOPUR SJ
  5. GANIRELIX ACETATE. [Suspect]
     Active Substance: GANIRELIX ACETATE
     Indication: INFERTILITY FEMALE
     Dosage: 250 MICROGRAM, PRN
     Route: 058
     Dates: start: 2019
  6. UBIDECARENONE [Concomitant]
     Active Substance: UBIDECARENONE
  7. PREGNYL [Concomitant]
     Active Substance: CHORIOGONADOTROPIN ALFA
     Indication: INFERTILITY FEMALE
     Dosage: MIX WITH 1ML DILUENT , WHEN DIRECTED
     Route: 058
     Dates: start: 201908
  8. FOLIC ACID. [Concomitant]
     Active Substance: FOLIC ACID

REACTIONS (1)
  - Injection site mass [Unknown]

NARRATIVE: CASE EVENT DATE: 2019
